FAERS Safety Report 8345652-9 (Version None)
Quarter: 2012Q2

REPORT INFORMATION
  Report Type: 
  Country: None (occurrence: None)
  Receive Date: 20120508
  Receipt Date: 20120409
  Transmission Date: 20120825
  Serious: Yes (Death)
  Sender: FDA-Public Use
  Company Number: US-BAXTER-2012BAX002534

PATIENT
  Sex: Female

DRUGS (2)
  1. DIANEAL [Suspect]
     Indication: PERITONEAL DIALYSIS
     Route: 033
     Dates: end: 20120303
  2. DIANEAL [Suspect]
     Route: 033
     Dates: end: 20120303

REACTIONS (3)
  - DEATH [None]
  - MALAISE [None]
  - VOMITING [None]
